FAERS Safety Report 7907497-0 (Version None)
Quarter: 2011Q4

REPORT INFORMATION
  Report Type: 
  Country: None (occurrence: None)
  Receive Date: 20111109
  Receipt Date: 20111031
  Transmission Date: 20120403
  Serious: Yes (Death, Life-Threatening, Other)
  Sender: FDA-Public Use
  Company Number: 2011MA016003

PATIENT
  Age: 86 Year
  Sex: Female

DRUGS (6)
  1. PHENYTOIN [Suspect]
     Indication: CONVULSION
     Dosage: 100 MG;TID
  2. PRAZOSIN HCL [Concomitant]
  3. PIRACETAM [Concomitant]
  4. ASPIRIN [Concomitant]
  5. CLOPIDOGREL [Concomitant]
  6. AMLODIPINE [Concomitant]

REACTIONS (10)
  - MYOSITIS [None]
  - RESPIRATORY FAILURE [None]
  - CARDIAC ARREST [None]
  - TUBULOINTERSTITIAL NEPHRITIS [None]
  - SEPSIS [None]
  - HEPATITIS [None]
  - MULTI-ORGAN DISORDER [None]
  - HAEMODIALYSIS [None]
  - PNEUMONITIS [None]
  - DRUG RASH WITH EOSINOPHILIA AND SYSTEMIC SYMPTOMS [None]
